FAERS Safety Report 23807906 (Version 1)
Quarter: 2024Q2

REPORT INFORMATION
  Report Type: Spontaneous
  Country: US (occurrence: US)
  Receive Date: 20240502
  Receipt Date: 20240502
  Transmission Date: 20240716
  Serious: Yes (Other)
  Sender: FDA-Public Use
  Company Number: US-BAYER-2024A060533

PATIENT
  Age: 25 Year
  Sex: Male

DRUGS (1)
  1. KOVALTRY [Suspect]
     Active Substance: ANTIHEMOPHILIC FACTOR, HUMAN RECOMBINANT
     Indication: Prophylaxis
     Dosage: 2500 TO 3024 UNITS EVERY OTHER DAY

REACTIONS (2)
  - Skin laceration [None]
  - Nerve injury [None]

NARRATIVE: CASE EVENT DATE: 20240408
